FAERS Safety Report 7866928-5 (Version None)
Quarter: 2011Q4

REPORT INFORMATION
  Report Type: 
  Country: None (occurrence: None)
  Receive Date: 20111028
  Receipt Date: 20111018
  Transmission Date: 20120403
  Serious: Yes (Other)
  Sender: FDA-Public Use
  Company Number: CA-ROCHE-1007026

PATIENT
  Sex: Female

DRUGS (1)
  1. XOLAIR [Suspect]
     Indication: ASTHMA
     Route: 058
     Dates: start: 20070124

REACTIONS (7)
  - FALL [None]
  - PAIN [None]
  - EYE SWELLING [None]
  - BLOOD PRESSURE INCREASED [None]
  - DISCOMFORT [None]
  - ARTHRALGIA [None]
  - LACERATION [None]
